FAERS Safety Report 9295198 (Version 1)
Quarter: 2013Q1

REPORT INFORMATION
  Report Type: Spontaneous
  Country: US (occurrence: US)
  Receive Date: 20121227
  Receipt Date: 20121227
  Transmission Date: 20140127
  Serious: Yes (Other)
  Sender: FDA-Public Use
  Company Number: PHEH2012US008948

PATIENT
  Age: 19 Year
  Sex: Female
  Weight: 47 kg

DRUGS (14)
  1. EXJADE [Suspect]
     Indication: IRON OVERLOAD
     Route: 047
  2. DESFERAL [Suspect]
     Route: 042
  3. PROGRAF (TACROLIMUS) [Concomitant]
  4. NORVASC/DEN/(AMLODIPINE BESILATE) [Concomitant]
  5. MYFORTIC (MYCOPHENOLATE SODIUM) [Concomitant]
  6. PENVEX (PHENOXYMETHYLPENICILLIN) [Concomitant]
  7. ANAGRELIDE (ANAGRELIDE) [Concomitant]
  8. BACTRIM [Concomitant]
  9. CLIMARA (ESTRADIOL)(ESTRADIOL) [Concomitant]
  10. ASA (ACETYLSALICYLIC ACID) [Concomitant]
  11. CELEXA (CITALOPRAM HYDROBROMIDE) [Concomitant]
  12. LANTUS (INSULIN GLARGINE) [Concomitant]
  13. HUMALOG (INSULIN LISPRO) [Concomitant]
  14. TACROLIMUS (TACROLIMUS) [Concomitant]

REACTIONS (2)
  - Renal failure acute [None]
  - Blood creatinine increased [None]
